FAERS Safety Report 21453280 (Version 2)
Quarter: 2022Q4

REPORT INFORMATION
  Report Type: Spontaneous
  Country: DE (occurrence: DE)
  Receive Date: 20221013
  Receipt Date: 20221028
  Transmission Date: 20230112
  Serious: Yes (Other)
  Sender: FDA-Public Use
  Company Number: DE-BAYER-2022A141432

PATIENT
  Sex: Female

DRUGS (2)
  1. LEVONORGESTREL [Suspect]
     Active Substance: LEVONORGESTREL
     Dosage: 14?G/DAY
     Route: 015
     Dates: start: 2016, end: 20221010
  2. LEVONORGESTREL [Suspect]
     Active Substance: LEVONORGESTREL
     Dosage: 14?G/DAY
     Route: 015
     Dates: start: 2019, end: 2022

REACTIONS (5)
  - Device dislocation [Recovered/Resolved]
  - Uterine cyst [None]
  - Complication of device removal [None]
  - Device use issue [None]
  - Device physical property issue [None]

NARRATIVE: CASE EVENT DATE: 20220101
